FAERS Safety Report 8449890-6 (Version None)
Quarter: 2012Q2

REPORT INFORMATION
  Report Type: 
  Country: None (occurrence: None)
  Receive Date: 20120620
  Receipt Date: 20120611
  Transmission Date: 20120825
  Serious: Yes (Other)
  Sender: FDA-Public Use
  Company Number: US-JNJFOC-20060804157

PATIENT
  Sex: Female

DRUGS (6)
  1. RISPERDAL [Suspect]
     Indication: SCHIZOAFFECTIVE DISORDER
     Dates: start: 19970101, end: 20030701
  2. ABILIFY [Concomitant]
     Route: 065
  3. RISPERDAL [Suspect]
     Indication: BIPOLAR DISORDER
     Dates: start: 19970101, end: 20030701
  4. NAVANE [Concomitant]
     Route: 065
  5. RISPERDAL [Suspect]
     Indication: MAJOR DEPRESSION
     Dates: start: 19970101, end: 20030701
  6. RISPERDAL [Suspect]
     Indication: HYPOMANIA
     Dates: start: 19970101, end: 20030701

REACTIONS (6)
  - WEIGHT INCREASED [None]
  - DIABETIC NEUROPATHY [None]
  - TARDIVE DYSKINESIA [None]
  - TYPE 2 DIABETES MELLITUS [None]
  - AMENORRHOEA [None]
  - FATIGUE [None]
